FAERS Safety Report 5786097-5 (Version None)
Quarter: 2008Q2

REPORT INFORMATION
  Report Type: 
  Country: None (occurrence: None)
  Receive Date: 20080620
  Receipt Date: 20080620
  Transmission Date: 20081010
  Serious: Yes (Hospitalization)
  Sender: FDA-Public Use
  Company Number: None

PATIENT
  Age: 66 Year
  Sex: Male
  Weight: 62.6 kg

DRUGS (1)
  1. PIPERACILLIN AND TAZOBACTAM [Suspect]
     Indication: SINUSITIS
     Dosage: 4.5 GM QID IV
     Route: 042
     Dates: start: 20080501, end: 20080505

REACTIONS (1)
  - RENAL FAILURE ACUTE [None]
